FAERS Safety Report 23501864 (Version 2)
Quarter: 2024Q1

REPORT INFORMATION
  Report Type: Spontaneous
  Country: ES (occurrence: ES)
  Receive Date: 20240208
  Receipt Date: 20240214
  Transmission Date: 20240409
  Serious: Yes (Life-Threatening)
  Sender: FDA-Public Use
  Company Number: ES-ROCHE-3500210

PATIENT
  Age: 71 Year
  Sex: Male
  Weight: 76 kg

DRUGS (13)
  1. RITUXIMAB [Suspect]
     Active Substance: RITUXIMAB
     Indication: Diffuse large B-cell lymphoma
     Dosage: ON 26SEP2023 HE RECEIVED MOST RECENT DOSE OF STUDY DRUG (375 MG/M2) PRIOR TO AE/SAE.
     Route: 042
     Dates: start: 20230609
  2. DOXORUBICIN HYDROCHLORIDE [Suspect]
     Active Substance: DOXORUBICIN HYDROCHLORIDE
     Indication: Diffuse large B-cell lymphoma
     Dosage: ON 26SEP2023 HE RECEIVED MOST RECENT DOSE OF STUDY DRUG (50 MG/M2) PRIOR TO AE/SAE.
     Route: 042
     Dates: start: 20230608
  3. METHYLPREDNISOLONE SODIUM SUCCINATE [Suspect]
     Active Substance: METHYLPREDNISOLONE SODIUM SUCCINATE
     Indication: Diffuse large B-cell lymphoma
     Dosage: ON 27SEP2023 HE RECEIVED MOST RECENT DOSE OF STUDY DRUG (100 MG) PRIOR TO AE/SAE.
     Route: 042
     Dates: start: 20230608
  4. VINCRISTINE SULFATE [Suspect]
     Active Substance: VINCRISTINE SULFATE
     Indication: Diffuse large B-cell lymphoma
     Dosage: ON 26SEP2023 HE RECEIVED MOST RECENT DOSE OF STUDY DRUG (2 MG) PRIOR TO AE/SAE.
     Route: 042
     Dates: start: 20230608
  5. PREDNISOLONE [Suspect]
     Active Substance: PREDNISOLONE
     Indication: Diffuse large B-cell lymphoma
     Dosage: ON 27SEP2023 HE RECEIVED MOST RECENT DOSE OF STUDY DRUG (100 MG) PRIOR TO AE/SAE.
     Route: 042
  6. CYCLOPHOSPHAMIDE [Suspect]
     Active Substance: CYCLOPHOSPHAMIDE
     Indication: Diffuse large B-cell lymphoma
     Dosage: ON 26SEP2023 HE RECEIVED MOST RECENT DOSE OF STUDY DRUG (750 MG/M2) PRIOR TO AE/SAE.
     Route: 042
     Dates: start: 20230608
  7. PREDNISONE [Suspect]
     Active Substance: PREDNISONE
     Indication: Diffuse large B-cell lymphoma
     Dosage: ON 26SEP2023 HE RECEIVED MOST RECENT DOSE OF STUDY DRUG (80 MG) PRIOR TO AE/SAE.
     Route: 042
     Dates: start: 20230610
  8. GLOFITAMAB [Concomitant]
     Active Substance: GLOFITAMAB
     Indication: Diffuse large B-cell lymphoma
     Dosage: ON 19DEC2023 HE RECEIVED MOST RECENT DOSE OF STUDY DRUG (30 MG) PRIOR TO AE/SAE.
     Dates: start: 20230728
  9. SULFAMETHOXAZOLE\TRIMETHOPRIM [Concomitant]
     Active Substance: SULFAMETHOXAZOLE\TRIMETHOPRIM
     Dosage: 160 MG, 1X/DAY
     Dates: start: 20230609
  10. ASCORBIC ACID\POTASSIUM BICARBONATE [Concomitant]
     Active Substance: ASCORBIC ACID\POTASSIUM BICARBONATE
     Indication: Hypokalaemia
     Dosage: UNK
     Dates: start: 20231127
  11. EPOETIN ALFA [Concomitant]
     Active Substance: ERYTHROPOIETIN
     Indication: Anaemia
     Dosage: 40000 IU, WEEKLY
     Dates: start: 20231127
  12. MAGNESIUM [Concomitant]
     Active Substance: MAGNESIUM
     Indication: Hypomagnesaemia
     Dosage: FREQ:.33 D;
     Dates: start: 20231016
  13. ENOXAPARIN [Concomitant]
     Active Substance: ENOXAPARIN
     Dosage: FREQ:.5 D;
     Dates: start: 20230506

REACTIONS (1)
  - Large intestinal obstruction [Recovered/Resolved]

NARRATIVE: CASE EVENT DATE: 20240126
